FAERS Safety Report 19213621 (Version 4)
Quarter: 2021Q3

REPORT INFORMATION
  Report Type: Spontaneous
  Country: CA (occurrence: CA)
  Receive Date: 20210505
  Receipt Date: 20210910
  Transmission Date: 20211014
  Serious: Yes (Life-Threatening, Hospitalization, Other)
  Sender: FDA-Public Use
  Company Number: CA-ASTRAZENECA-2021A365696

PATIENT
  Age: 52 Year
  Sex: Female

DRUGS (31)
  1. FORMOTEROL FUMARATE/BUDESONIDE [Interacting]
     Active Substance: BUDESONIDE\FORMOTEROL FUMARATE
     Indication: PRODUCT USED FOR UNKNOWN INDICATION
     Dosage: UNKNOWN
     Route: 055
  2. DULOXETINE. [Interacting]
     Active Substance: DULOXETINE
     Indication: PRODUCT USED FOR UNKNOWN INDICATION
     Route: 065
  3. DULOXETINE. [Interacting]
     Active Substance: DULOXETINE
     Indication: SCIATICA
     Route: 065
  4. DULOXETINE. [Interacting]
     Active Substance: DULOXETINE
     Indication: PRODUCT USED FOR UNKNOWN INDICATION
     Route: 065
  5. DULOXETINE. [Interacting]
     Active Substance: DULOXETINE
     Indication: PRODUCT USED FOR UNKNOWN INDICATION
     Route: 065
  6. XYLOMETAZOLINE [Interacting]
     Active Substance: XYLOMETAZOLINE
     Indication: PRODUCT USED FOR UNKNOWN INDICATION
     Route: 061
  7. XYLOMETAZOLINE [Interacting]
     Active Substance: XYLOMETAZOLINE
     Indication: PRODUCT USED FOR UNKNOWN INDICATION
     Route: 045
  8. FORMOTEROL FUMARATE/BUDESONIDE [Interacting]
     Active Substance: BUDESONIDE\FORMOTEROL FUMARATE
     Indication: PRODUCT USED FOR UNKNOWN INDICATION
     Dosage: UNKNOWN
     Route: 055
  9. DULOXETINE. [Interacting]
     Active Substance: DULOXETINE
     Indication: SCIATICA
     Route: 065
  10. XYLOMETAZOLINE [Interacting]
     Active Substance: XYLOMETAZOLINE
     Indication: NASAL CONGESTION
     Route: 065
  11. XYLOMETAZOLINE [Interacting]
     Active Substance: XYLOMETAZOLINE
     Indication: NASAL CONGESTION
     Route: 065
  12. XYLOMETAZOLINE [Interacting]
     Active Substance: XYLOMETAZOLINE
     Indication: NASAL CONGESTION
     Route: 061
  13. SALBUTAMOL [Interacting]
     Active Substance: ALBUTEROL
     Indication: PRODUCT USED FOR UNKNOWN INDICATION
     Route: 065
  14. FORMOTEROL FUMARATE/BUDESONIDE [Suspect]
     Active Substance: BUDESONIDE\FORMOTEROL FUMARATE
     Indication: ASTHMA
     Dosage: UNKNOWN
     Route: 055
  15. DULOXETINE. [Interacting]
     Active Substance: DULOXETINE
     Indication: SCIATICA
     Route: 065
  16. XYLOMETAZOLINE [Interacting]
     Active Substance: XYLOMETAZOLINE
     Indication: PRODUCT USED FOR UNKNOWN INDICATION
     Route: 061
  17. XYLOMETAZOLINE [Interacting]
     Active Substance: XYLOMETAZOLINE
     Indication: PRODUCT USED FOR UNKNOWN INDICATION
     Route: 065
  18. SALBUTAMOL [Interacting]
     Active Substance: ALBUTEROL
     Indication: ASTHMA
     Route: 065
  19. FORMOTEROL FUMARATE/BUDESONIDE [Interacting]
     Active Substance: BUDESONIDE\FORMOTEROL FUMARATE
     Indication: ASTHMA
     Dosage: UNKNOWN
     Route: 055
  20. SALBUTAMOL [Interacting]
     Active Substance: ALBUTEROL
     Indication: PRODUCT USED FOR UNKNOWN INDICATION
     Route: 065
  21. XYLOMETAZOLINE [Interacting]
     Active Substance: XYLOMETAZOLINE
     Indication: NASAL CONGESTION
     Route: 061
  22. XYLOMETAZOLINE [Interacting]
     Active Substance: XYLOMETAZOLINE
     Indication: NASAL CONGESTION
     Route: 045
  23. XYLOMETAZOLINE [Interacting]
     Active Substance: XYLOMETAZOLINE
     Indication: PRODUCT USED FOR UNKNOWN INDICATION
     Route: 045
  24. SALBUTAMOL [Interacting]
     Active Substance: ALBUTEROL
     Indication: ASTHMA
     Route: 065
  25. DULOXETINE. [Interacting]
     Active Substance: DULOXETINE
     Indication: SCIATICA
     Route: 065
  26. XYLOMETAZOLINE [Interacting]
     Active Substance: XYLOMETAZOLINE
     Indication: NASAL CONGESTION
     Route: 045
  27. FORMOTEROL FUMARATE/BUDESONIDE [Interacting]
     Active Substance: BUDESONIDE\FORMOTEROL FUMARATE
     Indication: ASTHMA
     Dosage: UNKNOWN
     Route: 055
  28. FORMOTEROL FUMARATE/BUDESONIDE [Interacting]
     Active Substance: BUDESONIDE\FORMOTEROL FUMARATE
     Indication: PRODUCT USED FOR UNKNOWN INDICATION
     Dosage: UNKNOWN
     Route: 055
  29. DULOXETINE. [Interacting]
     Active Substance: DULOXETINE
     Indication: PRODUCT USED FOR UNKNOWN INDICATION
     Route: 065
  30. XYLOMETAZOLINE [Interacting]
     Active Substance: XYLOMETAZOLINE
     Indication: PRODUCT USED FOR UNKNOWN INDICATION
     Route: 065
  31. SALBUTAMOL SULFATE [Concomitant]
     Active Substance: ALBUTEROL SULFATE
     Indication: ASTHMA
     Route: 065

REACTIONS (15)
  - Rhinorrhoea [Unknown]
  - Reversible cerebral vasoconstriction syndrome [Recovered/Resolved]
  - Subarachnoid haemorrhage [Recovered/Resolved]
  - Allergy to animal [Recovered/Resolved]
  - Headache [Recovered/Resolved]
  - Drug interaction [Recovered/Resolved]
  - Product use in unapproved indication [Recovered/Resolved]
  - Cerebral artery stenosis [Recovered/Resolved]
  - Nasal septum deviation [Recovered/Resolved]
  - Nasal turbinate hypertrophy [Recovered/Resolved]
  - Rhinorrhoea [Recovered/Resolved]
  - Hypertension [Recovered/Resolved]
  - Thunderclap headache [Recovered/Resolved]
  - Nasal mucosal disorder [Recovered/Resolved]
  - Rebound nasal congestion [Recovered/Resolved]
